FAERS Safety Report 5952398-0 (Version None)
Quarter: 2008Q4

REPORT INFORMATION
  Report Type: 
  Country: None (occurrence: None)
  Receive Date: 20081022
  Receipt Date: 20080529
  Transmission Date: 20090506
  Serious: No
  Sender: FDA-Public Use
  Company Number: ALL1-2008-01641

PATIENT
  Age: 9 Year
  Sex: Female
  Weight: 30.8 kg

DRUGS (2)
  1. VYVANSE [Suspect]
     Indication: ATTENTION DEFICIT/HYPERACTIVITY DISORDER
     Dosage: 70 MG, 1X/DAY:QD, ORAL
     Route: 048
     Dates: start: 20071001
  2. ABILIFY [Concomitant]

REACTIONS (2)
  - AGGRESSION [None]
  - CONDITION AGGRAVATED [None]
